FAERS Safety Report 24005651 (Version 1)
Quarter: 2024Q2

REPORT INFORMATION
  Report Type: Spontaneous
  Country: US (occurrence: US)
  Receive Date: 20240624
  Receipt Date: 20240624
  Transmission Date: 20240716
  Serious: No
  Sender: FDA-Public Use
  Company Number: US-BRISTOL-MYERS SQUIBB COMPANY-2024-098248

PATIENT
  Age: 82 Year
  Sex: Female
  Weight: 83.91 kg

DRUGS (4)
  1. ELIQUIS [Suspect]
     Active Substance: APIXABAN
     Indication: Atrial fibrillation
     Dosage: 1 DF, 2X/DAY
     Route: 048
     Dates: start: 202311
  2. ELIQUIS [Suspect]
     Active Substance: APIXABAN
     Indication: Deep vein thrombosis
  3. METOPROLOL TARTRATE [Suspect]
     Active Substance: METOPROLOL TARTRATE
     Dosage: 75 MG, 2X/DAY
  4. HYDROXYUREA [Concomitant]
     Active Substance: HYDROXYUREA
     Indication: Haematological malignancy
     Dosage: 500 MG, 1X/DAY

REACTIONS (4)
  - Tooth disorder [Unknown]
  - Somnolence [Unknown]
  - Anxiety [Unknown]
  - Weight increased [Unknown]

NARRATIVE: CASE EVENT DATE: 20240601
